FAERS Safety Report 10794386 (Version 1)
Quarter: 2015Q1

REPORT INFORMATION
  Report Type: Spontaneous
  Country: US (occurrence: US)
  Receive Date: 20150213
  Receipt Date: 20150213
  Transmission Date: 20150721
  Serious: No
  Sender: FDA-Public Use
  Company Number: US-PFIZER INC-2015052345

PATIENT
  Age: 76 Year
  Sex: Male

DRUGS (1)
  1. SUTENT [Suspect]
     Active Substance: SUNITINIB MALATE
     Indication: CLEAR CELL RENAL CELL CARCINOMA
     Dosage: 2 WEEK BREAK AFTER EACH TREATMENT CYCLE
     Route: 048
     Dates: start: 201304, end: 2013

REACTIONS (2)
  - Clear cell renal cell carcinoma [Unknown]
  - Disease progression [Unknown]
